FAERS Safety Report 10928780 (Version 1)
Quarter: 2015Q1

REPORT INFORMATION
  Report Type: Spontaneous
  Country: US (occurrence: None)
  Receive Date: 20150206
  Receipt Date: 20150206
  Transmission Date: 20150721
  Serious: No
  Sender: FDA-Public Use
  Company Number: 1411USA002263

PATIENT
  Age: 19 Year
  Sex: Female

DRUGS (2)
  1. HOMONAL CONTRACEPTIVES (HORMONAL CONTRACEPTIVES) [Concomitant]
  2. GRASTEK [Suspect]
     Active Substance: PHLEUM PRATENSE POLLEN
     Indication: HYPERSENSITIVITY
     Dosage: TABLET
     Dates: start: 20141024

REACTIONS (5)
  - Throat tightness [None]
  - Headache [None]
  - Incorrect route of drug administration [None]
  - Throat irritation [None]
  - Dizziness [None]

NARRATIVE: CASE EVENT DATE: 20141024
